FAERS Safety Report 19467131 (Version 2)
Quarter: 2021Q3

REPORT INFORMATION
  Report Type: Spontaneous
  Country: GB (occurrence: GB)
  Receive Date: 20210628
  Receipt Date: 20210719
  Transmission Date: 20211014
  Serious: Yes (Hospitalization)
  Sender: FDA-Public Use
  Company Number: GB-CELLTRION INC.-2021GB008750

PATIENT

DRUGS (1)
  1. REMSIMA [Suspect]
     Active Substance: INFLIXIMAB
     Indication: CROHN^S DISEASE
     Dosage: PREFILLED PEN; 120 MILLIGRAM, FORTNIGHTLY
     Route: 058

REACTIONS (5)
  - Mobility decreased [Unknown]
  - Insomnia [Unknown]
  - Arthropathy [Unknown]
  - Discomfort [Unknown]
  - Pain [Unknown]
